FAERS Safety Report 8484382-X (Version None)
Quarter: 2012Q3

REPORT INFORMATION
  Report Type: 
  Country: None (occurrence: None)
  Receive Date: 20120703
  Receipt Date: 20120626
  Transmission Date: 20120928
  Serious: Yes (Hospitalization)
  Sender: FDA-Public Use
  Company Number: FR-SANOFI-AVENTIS-2012SA045402

PATIENT
  Age: 65 Year
  Sex: Male

DRUGS (3)
  1. PLAQUENIL [Suspect]
     Route: 048
     Dates: start: 20120320, end: 20120604
  2. THIAMINE HYDROCHLORIDE [Suspect]
     Route: 048
     Dates: start: 20120515, end: 20120604
  3. PLAQUENIL [Suspect]
     Route: 048
     Dates: start: 20060101

REACTIONS (2)
  - BRADYCARDIA [None]
  - ATRIOVENTRICULAR BLOCK COMPLETE [None]
